FAERS Safety Report 5454150-1 (Version None)
Quarter: 2007Q3

REPORT INFORMATION
  Report Type: 
  Country: None (occurrence: None)
  Receive Date: 20070917
  Receipt Date: 20070228
  Transmission Date: 20080115
  Serious: Yes (Hospitalization)
  Sender: FDA-Public Use
  Company Number: US-ASTRAZENECA-2006UW11143

PATIENT
  Age: 34 Year
  Sex: Female
  Weight: 68.6 kg

DRUGS (5)
  1. SEROQUEL [Suspect]
     Indication: DEPRESSION
     Route: 048
     Dates: start: 19990101, end: 20030101
  2. SEROQUEL [Suspect]
     Indication: SCHIZOPHRENIA
     Route: 048
     Dates: start: 19990101, end: 20030101
  3. ZYPREXA [Suspect]
  4. ZYPREXA [Concomitant]
  5. HALDOL [Concomitant]

REACTIONS (1)
  - PANCREATITIS [None]
